FAERS Safety Report 10379309 (Version 1)
Quarter: 2014Q3

REPORT INFORMATION
  Report Type: Spontaneous
  Country: FR (occurrence: FR)
  Receive Date: 20140812
  Receipt Date: 20140812
  Transmission Date: 20150326
  Serious: Yes (Hospitalization)
  Sender: FDA-Public Use
  Company Number: FR-TEVA-500509ISR

PATIENT
  Age: 78 Year
  Sex: Female

DRUGS (2)
  1. CAELYX 20 MG/10 ML [Concomitant]
     Active Substance: DOXORUBICIN HYDROCHLORIDE
     Dosage: 40 MILLIGRAM DAILY; FROM 09:00 A.M. TO 09:30 A.M.
     Route: 042
     Dates: start: 20140709, end: 20140709
  2. CARBOPLATINE TEVA 600 MG/60 ML [Suspect]
     Active Substance: CARBOPLATIN
     Indication: OVARIAN CANCER
     Dosage: 330 MILLIGRAM DAILY; FROM 10:00 A.M. TO 10:30 A.M.
     Route: 041
     Dates: start: 20140709, end: 20140709

REACTIONS (1)
  - Chest pain [Recovered/Resolved]

NARRATIVE: CASE EVENT DATE: 20140709
